FAERS Safety Report 24607202 (Version 2)
Quarter: 2024Q4

REPORT INFORMATION
  Report Type: Spontaneous
  Country: AT (occurrence: AT)
  Receive Date: 20241112
  Receipt Date: 20241125
  Transmission Date: 20250115
  Serious: Yes (Other)
  Sender: BRISTOL-MYERS SQUIBB COMPANY
  Company Number: AT-BRISTOL-MYERS SQUIBB COMPANY-2024-175945

PATIENT
  Age: 83 Year
  Sex: Female
  Weight: 85 kg

DRUGS (1)
  1. ELIQUIS [Suspect]
     Active Substance: APIXABAN
     Indication: Atrial fibrillation
     Route: 048
     Dates: start: 2020

REACTIONS (2)
  - Nephrolithiasis [Unknown]
  - Treatment noncompliance [Unknown]
